FAERS Safety Report 7930949-4 (Version None)
Quarter: 2011Q4

REPORT INFORMATION
  Report Type: 
  Country: None (occurrence: None)
  Receive Date: 20111121
  Receipt Date: 20111114
  Transmission Date: 20120403
  Serious: No
  Sender: FDA-Public Use
  Company Number: US-PFIZER INC-2011279716

PATIENT
  Sex: Male

DRUGS (1)
  1. PHOSPHOLINE IODIDE [Suspect]
     Indication: STRABISMUS
     Dosage: UNK, DAILY
     Dates: start: 20111101

REACTIONS (1)
  - DRUG INEFFECTIVE [None]
